FAERS Safety Report 9500195 (Version 1)
Quarter: 2013Q3

REPORT INFORMATION
  Report Type: Spontaneous
  Country: CA (occurrence: CA)
  Receive Date: 20130905
  Receipt Date: 20130905
  Transmission Date: 20140515
  Serious: Yes (Life-Threatening)
  Sender: FDA-Public Use
  Company Number: CA-BAYER-2013-106626

PATIENT
  Age: 62 Year
  Sex: Male

DRUGS (1)
  1. GADOVIST [Suspect]
     Indication: NEOPLASM
     Dosage: 11 ML, UNK
     Route: 042

REACTIONS (2)
  - Pruritus [Recovering/Resolving]
  - Urticaria [Recovering/Resolving]
